FAERS Safety Report 7825809 (Version 4)
Quarter: 2015Q4

REPORT INFORMATION
  Report Type: Spontaneous
  Country: US (occurrence: US)
  Receive Date: 20110224
  Receipt Date: 20151106
  Transmission Date: 20160305
  Serious: Yes (Other)
  Sender: FDA-Public Use
  Company Number: US-BAYER-2011-017070

PATIENT
  Age: 36 Year
  Sex: Female
  Weight: 133.79 kg

DRUGS (11)
  1. GUAIFENESIN. [Concomitant]
     Active Substance: GUAIFENESIN
     Dosage: 600 MG, BID
  2. YAZ [Suspect]
     Active Substance: DROSPIRENONE\ETHINYL ESTRADIOL
     Indication: MENORRHAGIA
     Dosage: UNK
     Route: 048
     Dates: start: 20091104, end: 2009
  3. MERIEUX FLU VACCINE [Concomitant]
  4. VENTOLIN [Concomitant]
     Active Substance: ALBUTEROL SULFATE
     Dosage: 1 PUFF EVERY 4 TO 6 HRS
     Route: 045
  5. KAPIDEX [Concomitant]
     Active Substance: DEXLANSOPRAZOLE
  6. MUCINEX [Concomitant]
     Active Substance: GUAIFENESIN
     Dosage: 600 MG, UNK
  7. SYNTHROID [Concomitant]
     Active Substance: LEVOTHYROXINE SODIUM
     Indication: THYROID DISORDER
     Dosage: 200 MCG A DAY
     Dates: start: 2006
  8. LISINOPRIL. [Concomitant]
     Active Substance: LISINOPRIL
     Indication: HYPERTENSION
     Dosage: 10/12.5 MG A DAY
     Dates: start: 2007
  9. SERTRALINE [Concomitant]
     Active Substance: SERTRALINE HYDROCHLORIDE
     Indication: DEPRESSION
     Dosage: 100 MG A DAY 1 ? TABLETS
     Dates: start: 2007
  10. CEFTIN [Concomitant]
     Active Substance: CEFUROXIME AXETIL
     Dosage: 500 MG
  11. OMEPRAZOLE. [Concomitant]
     Active Substance: OMEPRAZOLE

REACTIONS (11)
  - General physical health deterioration [None]
  - Gallbladder disorder [None]
  - Systemic lupus erythematosus [None]
  - Injury [Recovered/Resolved]
  - Emotional distress [None]
  - Thrombosis [None]
  - Depression [None]
  - Cholecystitis chronic [None]
  - Pain [None]
  - Deep vein thrombosis [Recovered/Resolved]
  - Anxiety [None]

NARRATIVE: CASE EVENT DATE: 200911
